FAERS Safety Report 13057672 (Version 1)
Quarter: 2016Q4

REPORT INFORMATION
  Report Type: Spontaneous
  Country: GB (occurrence: GB)
  Receive Date: 20161223
  Receipt Date: 20161223
  Transmission Date: 20170207
  Serious: Yes (Hospitalization)
  Sender: FDA-Public Use
  Company Number: GB-ACCORD-046664

PATIENT
  Age: 65 Year
  Sex: Female

DRUGS (16)
  1. DOCUSATE/DOCUSATE CALCIUM/DOCUSATE POTASSIUM/DOCUSATE SODIUM [Suspect]
     Active Substance: DOCUSATE
     Indication: CONSTIPATION
  2. CALCICHEW D3 [Concomitant]
     Active Substance: CALCIUM\CHOLECALCIFEROL
  3. BUPRENORPHINE. [Concomitant]
     Active Substance: BUPRENORPHINE
  4. CELECOXIB. [Concomitant]
     Active Substance: CELECOXIB
  5. NAPROXEN. [Concomitant]
     Active Substance: NAPROXEN
  6. SENNA ALEXANDRINA [Concomitant]
     Active Substance: SENNA LEAF
  7. AMITRIPTYLINE [Suspect]
     Active Substance: AMITRIPTYLINE
     Indication: PRODUCT USED FOR UNKNOWN INDICATION
     Dosage: AT NIGHT
     Route: 048
     Dates: start: 20161121, end: 20161128
  8. NITROFURANTOIN/NITROFURANTOIN SODIUM [Concomitant]
  9. AMOXICILLIN. [Concomitant]
     Active Substance: AMOXICILLIN
  10. OMEPRAZOLE. [Concomitant]
     Active Substance: OMEPRAZOLE
  11. PROCHLORPERAZINE. [Concomitant]
     Active Substance: PROCHLORPERAZINE
  12. VAGIFEM [Concomitant]
     Active Substance: ESTRADIOL
  13. DIAZEPAM. [Concomitant]
     Active Substance: DIAZEPAM
  14. PARACETAMOL [Concomitant]
     Active Substance: ACETAMINOPHEN
  15. GABAPENTIN. [Suspect]
     Active Substance: GABAPENTIN
     Indication: NEURALGIA
     Route: 048
     Dates: start: 20161121, end: 20161128
  16. CODEINE [Suspect]
     Active Substance: CODEINE
     Indication: PAIN
     Dosage: 15MG TO 30MG FOUR TIMES A DAY
     Route: 048
     Dates: start: 20161121, end: 20161128

REACTIONS (4)
  - Lethargy [Recovering/Resolving]
  - Vomiting [Recovering/Resolving]
  - Lip swelling [Recovering/Resolving]
  - Malaise [Recovering/Resolving]

NARRATIVE: CASE EVENT DATE: 20161121
